FAERS Safety Report 8003174-9 (Version None)
Quarter: 2011Q4

REPORT INFORMATION
  Report Type: 
  Country: None (occurrence: None)
  Receive Date: 20111222
  Receipt Date: 20111213
  Transmission Date: 20120403
  Serious: Yes (Hospitalization)
  Sender: FDA-Public Use
  Company Number: PHHY2011FR95456

PATIENT
  Sex: Male
  Weight: 81 kg

DRUGS (7)
  1. VALSARTAN [Suspect]
     Indication: HYPERTENSION
     Dosage: 160 MG, QD
     Route: 048
     Dates: start: 20090331
  2. ACEBUTOLOL [Concomitant]
     Dosage: UNK,
  3. ASPIRIN [Concomitant]
  4. PRAVASTATIN [Concomitant]
     Dosage: 40 MG, UNK
  5. AMIODARONE [Concomitant]
  6. BISOPROLOL FUMARATE [Concomitant]
     Dosage: 5 MG, UNK
  7. FUROSEMIDE [Concomitant]
     Dosage: 40 MG, UNK

REACTIONS (1)
  - DYSPHAGIA [None]
